FAERS Safety Report 25399810 (Version 4)
Quarter: 2025Q3

REPORT INFORMATION
  Report Type: Report from Study
  Country: US (occurrence: US)
  Receive Date: 20250605
  Receipt Date: 20250819
  Transmission Date: 20251020
  Serious: Yes (Hospitalization, Other)
  Sender: TAKEDA
  Company Number: US-TAKEDA-2024TUS041357

PATIENT
  Sex: Male
  Weight: 72.562 kg

DRUGS (7)
  1. FRUQUINTINIB [Suspect]
     Active Substance: FRUQUINTINIB
     Indication: Rectal cancer
  2. FRUQUINTINIB [Suspect]
     Active Substance: FRUQUINTINIB
  3. FRUQUINTINIB [Suspect]
     Active Substance: FRUQUINTINIB
  4. FRUQUINTINIB [Suspect]
     Active Substance: FRUQUINTINIB
  5. BACITRACIN [Concomitant]
     Active Substance: BACITRACIN
     Route: 061
  6. ZITHROMAX [Concomitant]
     Active Substance: AZITHROMYCIN DIHYDRATE
  7. DEXAMETHASONE [Concomitant]
     Active Substance: DEXAMETHASONE

REACTIONS (11)
  - Brain neoplasm [Recovering/Resolving]
  - Seizure [Recovered/Resolved]
  - Rectal cancer [Unknown]
  - Metastases to central nervous system [Unknown]
  - Sinusitis [Unknown]
  - Taste disorder [Unknown]
  - Impaired healing [Unknown]
  - Product use issue [Unknown]
  - Blood magnesium decreased [Unknown]
  - Dysphonia [Unknown]
  - Fatigue [Unknown]
